FAERS Safety Report 15234694 (Version 1)
Quarter: 2018Q3

REPORT INFORMATION
  Report Type: Spontaneous
  Country: GR (occurrence: GR)
  Receive Date: 20180803
  Receipt Date: 20180803
  Transmission Date: 20181010
  Serious: Yes (Other)
  Sender: FDA-Public Use
  Company Number: GR-TEVA-2018-GR-937556

PATIENT
  Age: 42 Year
  Sex: Female

DRUGS (1)
  1. COPAXONE [Suspect]
     Active Substance: GLATIRAMER ACETATE
     Indication: MULTIPLE SCLEROSIS
     Dosage: 20 MILLIGRAM DAILY;  STARTED TREATMENT 5,5 YEARS AGO
     Route: 065

REACTIONS (6)
  - Hypoaesthesia [Recovered/Resolved]
  - Dizziness [Recovered/Resolved]
  - Thirst [Recovered/Resolved]
  - Chest discomfort [Recovered/Resolved]
  - Retching [Recovered/Resolved]
  - Deafness [Recovered/Resolved]
